FAERS Safety Report 10607405 (Version 5)
Quarter: 2015Q1

REPORT INFORMATION
  Report Type: Report from Study
  Country: US (occurrence: US)
  Receive Date: 20141125
  Receipt Date: 20150317
  Transmission Date: 20150720
  Serious: Yes (Hospitalization, Disabling, Other)
  Sender: FDA-Public Use
  Company Number: US-SANOFI-AVENTIS-2013SA014244

PATIENT
  Age: 35 Year
  Sex: Female

DRUGS (3)
  1. TYSABRI [Concomitant]
     Active Substance: NATALIZUMAB
     Indication: MULTIPLE SCLEROSIS
     Route: 042
     Dates: start: 20130201
  2. TYSABRI [Concomitant]
     Active Substance: NATALIZUMAB
     Indication: MULTIPLE SCLEROSIS
     Route: 042
     Dates: start: 20080615, end: 20121008
  3. AUBAGIO [Suspect]
     Active Substance: TERIFLUNOMIDE
     Indication: MULTIPLE SCLEROSIS
     Route: 065
     Dates: start: 20130115, end: 20130125

REACTIONS (14)
  - Thinking abnormal [Unknown]
  - Abnormal behaviour [Unknown]
  - Immobile [Not Recovered/Not Resolved]
  - Feeling abnormal [Unknown]
  - Multiple sclerosis relapse [Not Recovered/Not Resolved]
  - Visual impairment [Not Recovered/Not Resolved]
  - General physical health deterioration [Unknown]
  - Loss of consciousness [Unknown]
  - Multiple sclerosis relapse [Not Recovered/Not Resolved]
  - Dizziness [Unknown]
  - Immobile [Unknown]
  - Abasia [Not Recovered/Not Resolved]
  - Memory impairment [Not Recovered/Not Resolved]
  - Hearing impaired [Not Recovered/Not Resolved]

NARRATIVE: CASE EVENT DATE: 201301
